FAERS Safety Report 7964188-8 (Version None)
Quarter: 2011Q4

REPORT INFORMATION
  Report Type: 
  Country: None (occurrence: None)
  Receive Date: 20111121
  Receipt Date: 20110728
  Transmission Date: 20120403
  Serious: No
  Sender: FDA-Public Use
  Company Number: 1000022558

PATIENT
  Age: 61 Year
  Sex: Female

DRUGS (8)
  1. VALIUM [Concomitant]
  2. VIIBRYD [Suspect]
     Indication: DEPRESSION
     Dosage: 10 MG (10 MG, 1 IN 1 D),ORAL, 20 0 MG (10 MG, 1 IN 1 D),ORAL, 30 MG (10 MG, 1 IN 1 D),ORAL
     Route: 048
     Dates: start: 20110706, end: 20110712
  3. VIIBRYD [Suspect]
     Indication: ANXIETY
     Dosage: 10 MG (10 MG, 1 IN 1 D),ORAL, 20 0 MG (10 MG, 1 IN 1 D),ORAL, 30 MG (10 MG, 1 IN 1 D),ORAL
     Route: 048
     Dates: start: 20110706, end: 20110712
  4. VIIBRYD [Suspect]
     Indication: DEPRESSION
     Dosage: 10 MG (10 MG, 1 IN 1 D),ORAL, 20 0 MG (10 MG, 1 IN 1 D),ORAL, 30 MG (10 MG, 1 IN 1 D),ORAL
     Route: 048
     Dates: start: 20110727
  5. VIIBRYD [Suspect]
     Indication: ANXIETY
     Dosage: 10 MG (10 MG, 1 IN 1 D),ORAL, 20 0 MG (10 MG, 1 IN 1 D),ORAL, 30 MG (10 MG, 1 IN 1 D),ORAL
     Route: 048
     Dates: start: 20110727
  6. VIIBRYD [Suspect]
     Indication: DEPRESSION
     Dosage: 10 MG (10 MG, 1 IN 1 D),ORAL, 20 0 MG (10 MG, 1 IN 1 D),ORAL, 30 MG (10 MG, 1 IN 1 D),ORAL
     Route: 048
     Dates: start: 20110713, end: 20110726
  7. VIIBRYD [Suspect]
     Indication: ANXIETY
     Dosage: 10 MG (10 MG, 1 IN 1 D),ORAL, 20 0 MG (10 MG, 1 IN 1 D),ORAL, 30 MG (10 MG, 1 IN 1 D),ORAL
     Route: 048
     Dates: start: 20110713, end: 20110726
  8. GLUTENEASE (GLUTENEASE) (GLUTENEASE) [Concomitant]

REACTIONS (1)
  - PRURITUS [None]
